FAERS Safety Report 23265722 (Version 1)
Quarter: 2023Q4

REPORT INFORMATION
  Report Type: Spontaneous
  Country: TW (occurrence: TW)
  Receive Date: 20231206
  Receipt Date: 20231206
  Transmission Date: 20240110
  Serious: Yes (Other)
  Sender: FDA-Public Use
  Company Number: TW-ASTELLAS-2023US035895

PATIENT
  Age: 42 Year
  Sex: Male
  Weight: 59 kg

DRUGS (11)
  1. TACROLIMUS [Suspect]
     Active Substance: TACROLIMUS
     Indication: Prophylaxis against transplant rejection
     Dosage: 5 MG, TWICE DAILY (5/5MG)
     Route: 065
     Dates: start: 202206
  2. TACROLIMUS [Suspect]
     Active Substance: TACROLIMUS
     Dosage: 3 MG, TWICE DAILY (3/3MG)
     Route: 065
     Dates: start: 202206
  3. TACROLIMUS [Suspect]
     Active Substance: TACROLIMUS
     Dosage: 2.5 MG, TWICE DAILY (2.5/2.5 MG)
     Route: 065
     Dates: start: 202206
  4. TACROLIMUS [Suspect]
     Active Substance: TACROLIMUS
     Dosage: 3 MG, TWICE DAILY (3/3 MG)
     Route: 065
     Dates: start: 202207
  5. TACROLIMUS [Suspect]
     Active Substance: TACROLIMUS
     Dosage: 3 MG, TWICE DAILY (3/3 MG)
     Route: 065
  6. TACROLIMUS [Suspect]
     Active Substance: TACROLIMUS
     Dosage: 2 MG, TWICE DAILY (2/2 MG)
     Route: 065
     Dates: start: 2023
  7. TACROLIMUS [Suspect]
     Active Substance: TACROLIMUS
     Route: 065
     Dates: start: 2023
  8. TACROLIMUS [Suspect]
     Active Substance: TACROLIMUS
     Route: 065
     Dates: start: 2023
  9. TACROLIMUS [Suspect]
     Active Substance: TACROLIMUS
     Dosage: 0.5 MG, ONCE DAILY
     Route: 065
     Dates: start: 2023
  10. MYCOPHENOLATE MOFETIL [Concomitant]
     Active Substance: MYCOPHENOLATE MOFETIL
     Indication: Immunosuppression
     Route: 005
  11. MYCOPHENOLATE MOFETIL [Concomitant]
     Active Substance: MYCOPHENOLATE MOFETIL
     Route: 005

REACTIONS (3)
  - Tubulointerstitial nephritis [Unknown]
  - Polyomavirus-associated nephropathy [Unknown]
  - Immunosuppressant drug level decreased [Unknown]
